FAERS Safety Report 25298920 (Version 3)
Quarter: 2025Q2

REPORT INFORMATION
  Report Type: Report from Study
  Country: BE (occurrence: BE)
  Receive Date: 20250512
  Receipt Date: 20250515
  Transmission Date: 20250716
  Serious: Yes (Hospitalization)
  Sender: ABBVIE
  Company Number: BE-ABBVIE-6262605

PATIENT
  Age: 54 Year
  Sex: Male

DRUGS (6)
  1. FOSCARBIDOPA\FOSLEVODOPA [Suspect]
     Active Substance: FOSCARBIDOPA\FOSLEVODOPA
     Indication: Parkinson^s disease
     Route: 058
     Dates: start: 20250414, end: 20250416
  2. FOSCARBIDOPA\FOSLEVODOPA [Suspect]
     Active Substance: FOSCARBIDOPA\FOSLEVODOPA
     Route: 058
     Dates: start: 20250123, end: 20250414
  3. FOSCARBIDOPA\FOSLEVODOPA [Suspect]
     Active Substance: FOSCARBIDOPA\FOSLEVODOPA
     Route: 058
     Dates: start: 20250416, end: 20250417
  4. FOSCARBIDOPA\FOSLEVODOPA [Suspect]
     Active Substance: FOSCARBIDOPA\FOSLEVODOPA
     Route: 058
     Dates: start: 20250417, end: 20250422
  5. FOSCARBIDOPA\FOSLEVODOPA [Suspect]
     Active Substance: FOSCARBIDOPA\FOSLEVODOPA
     Route: 058
     Dates: start: 20250422, end: 20250425
  6. FOSCARBIDOPA\FOSLEVODOPA [Suspect]
     Active Substance: FOSCARBIDOPA\FOSLEVODOPA
     Route: 058
     Dates: start: 20250425

REACTIONS (11)
  - Restlessness [Unknown]
  - Confusional state [Unknown]
  - Hyperkinesia [Unknown]
  - Fatigue [Unknown]
  - Dyskinesia [Unknown]
  - Motor dysfunction [Unknown]
  - On and off phenomenon [Not Recovered/Not Resolved]
  - Feeding disorder [Unknown]
  - Agitation [Not Recovered/Not Resolved]
  - Aggression [Recovered/Resolved]
  - Parkinson^s disease [Unknown]

NARRATIVE: CASE EVENT DATE: 20250429
